FAERS Safety Report 5374215-2 (Version None)
Quarter: 2007Q2

REPORT INFORMATION
  Report Type: 
  Country: None (occurrence: None)
  Receive Date: 20070627
  Receipt Date: 20060724
  Transmission Date: 20071010
  Serious: Yes (Hospitalization)
  Sender: FDA-Public Use
  Company Number: 456908

PATIENT
  Age: 78 Year
  Sex: Male
  Weight: 66.7 kg

DRUGS (1)
  1. XELODA [Suspect]
     Indication: NEOPLASM MALIGNANT
     Dosage: 1000 MG 2 PER DAY ORAL
     Route: 048
     Dates: start: 20060524, end: 20060610

REACTIONS (2)
  - DIARRHOEA [None]
  - NEUTROPENIA [None]
